FAERS Safety Report 13019200 (Version 1)
Quarter: 2016Q4

REPORT INFORMATION
  Report Type: Spontaneous
  Country: US (occurrence: US)
  Receive Date: 20161212
  Receipt Date: 20161212
  Transmission Date: 20170207
  Serious: No
  Sender: FDA-Public Use
  Company Number: US-ROCHE-1785342

PATIENT
  Age: 71 Year
  Sex: Male

DRUGS (2)
  1. VALIUM [Suspect]
     Active Substance: DIAZEPAM
     Indication: TACHYCARDIA
     Route: 065
  2. VALIUM [Suspect]
     Active Substance: DIAZEPAM
     Indication: HYPERTENSION
     Route: 065

REACTIONS (1)
  - Mental status changes [Unknown]
